FAERS Safety Report 16741066 (Version 1)
Quarter: 2019Q4

REPORT INFORMATION
  Report Type: Spontaneous
  Country: US (occurrence: US)
  Receive Date: 20190820
  Receipt Date: 20190820
  Transmission Date: 20200122
  Serious: No
  Sender: FDA-Public Use
  Company Number: None

PATIENT
  Age: 36 Year
  Sex: Female
  Weight: 70.2 kg

DRUGS (1)
  1. PINWORM MEDICINE [Suspect]
     Active Substance: PYRANTEL PAMOATE
     Indication: ENTEROBIASIS
     Dosage: ?          OTHER FREQUENCY:ONE TIME;?
     Route: 048

REACTIONS (2)
  - Drug interaction [None]
  - Respiratory distress [None]

NARRATIVE: CASE EVENT DATE: 20190726
